FAERS Safety Report 8829589 (Version 1)
Quarter: 2012Q4

REPORT INFORMATION
  Report Type: 
  Country: US (occurrence: US)
  Receive Date: 20121008
  Receipt Date: 20121008
  Transmission Date: 20130627
  Serious: No
  Sender: FDA-Public Use
  Company Number: US-TEVA-353823USA

PATIENT
  Sex: Female
  Weight: 54.48 kg

DRUGS (3)
  1. QVAR [Suspect]
     Indication: ASTHMA
     Dosage: 1 puff BID
     Dates: start: 201207, end: 201207
  2. ALBUTEROL SULFATE [Concomitant]
     Indication: ASTHMA
     Dosage: prn
  3. SINGULAIR [Concomitant]
     Indication: ASTHMA
     Dates: start: 201207

REACTIONS (1)
  - Wheezing [Recovered/Resolved]
